FAERS Safety Report 6658075-5 (Version None)
Quarter: 2010Q1

REPORT INFORMATION
  Report Type: 
  Country: None (occurrence: None)
  Receive Date: 20100330
  Receipt Date: 20100319
  Transmission Date: 20100710
  Serious: Yes (Hospitalization)
  Sender: FDA-Public Use
  Company Number: JP-MERCK-1001USA00308

PATIENT
  Age: 82 Year
  Sex: Female
  Weight: 53 kg

DRUGS (6)
  1. HYZAAR [Suspect]
     Indication: HYPERTENSION
     Route: 048
     Dates: start: 20091112, end: 20091221
  2. HYZAAR [Suspect]
     Route: 048
     Dates: start: 20071205, end: 20080130
  3. CALBLOCK [Concomitant]
     Indication: HYPERTENSION
     Route: 048
     Dates: start: 20051008
  4. URSO 250 [Concomitant]
     Indication: HEPATIC FUNCTION ABNORMAL
     Route: 048
     Dates: start: 20051026
  5. URSO 250 [Concomitant]
     Indication: HEPATITIS C
     Route: 048
     Dates: start: 20051026
  6. ELAVIL [Concomitant]
     Indication: DEPRESSION
     Route: 048
     Dates: start: 20080327

REACTIONS (5)
  - DEPRESSION [None]
  - EATING DISORDER [None]
  - GAIT DISTURBANCE [None]
  - HYPOCHLORAEMIA [None]
  - HYPONATRAEMIA [None]
